FAERS Safety Report 25719449 (Version 4)
Quarter: 2025Q4

REPORT INFORMATION
  Report Type: Report from Study
  Country: US (occurrence: US)
  Receive Date: 20250824
  Receipt Date: 20251113
  Transmission Date: 20260118
  Serious: Yes (Hospitalization)
  Sender: ABBVIE
  Company Number: US-ABBVIE-6407961

PATIENT
  Age: 76 Year
  Sex: Female
  Weight: 59.874 kg

DRUGS (4)
  1. SKYRIZI [Suspect]
     Active Substance: RISANKIZUMAB-RZAA
     Indication: Psoriatic arthropathy
     Dosage: DRUG END DATE--2025?150MG
     Route: 058
     Dates: start: 20250303
  2. SKYRIZI [Suspect]
     Active Substance: RISANKIZUMAB-RZAA
     Dosage: 150MG?MISSED DOSE
     Route: 058
     Dates: start: 20250626, end: 202509
  3. Heliocare Advance [Concomitant]
     Indication: Product used for unknown indication
     Route: 048
     Dates: start: 20250105
  4. CALTRATE [Concomitant]
     Active Substance: CALCIUM CARBONATE
     Indication: Product used for unknown indication
     Route: 048

REACTIONS (5)
  - Epistaxis [Recovered/Resolved]
  - Rash papular [Recovered/Resolved]
  - Arthropod bite [Recovered/Resolved]
  - Weight decreased [Recovered/Resolved]
  - Psoriatic arthropathy [Not Recovered/Not Resolved]

NARRATIVE: CASE EVENT DATE: 20250701
